FAERS Safety Report 18323857 (Version 5)
Quarter: 2021Q1

REPORT INFORMATION
  Report Type: Spontaneous
  Country: US (occurrence: US)
  Receive Date: 20200928
  Receipt Date: 20210122
  Transmission Date: 20210419
  Serious: Yes (Hospitalization, Other)
  Sender: FDA-Public Use
  Company Number: US-JNJFOC-A-NJ2019-192858

PATIENT
  Age: 59 Year
  Sex: Female
  Weight: 138 kg

DRUGS (11)
  1. TRACLEER [Suspect]
     Active Substance: BOSENTAN
     Indication: PULMONARY ARTERIAL HYPERTENSION
     Dosage: 125 MG, BID
     Route: 048
     Dates: end: 20200303
  2. LEVAQUIN [Suspect]
     Active Substance: LEVOFLOXACIN
     Indication: SINUSITIS
     Route: 065
  3. TYVASO [Concomitant]
     Active Substance: TREPROSTINIL
  4. UPTRAVI [Suspect]
     Active Substance: SELEXIPAG
     Route: 048
     Dates: start: 20190626
  5. UPTRAVI [Suspect]
     Active Substance: SELEXIPAG
     Route: 048
  6. XARELTO [Suspect]
     Active Substance: RIVAROXABAN
     Indication: PRODUCT USED FOR UNKNOWN INDICATION
     Dosage: UNK
     Route: 065
  7. REVATIO [Concomitant]
     Active Substance: SILDENAFIL CITRATE
  8. UPTRAVI [Suspect]
     Active Substance: SELEXIPAG
     Indication: PULMONARY ARTERIAL HYPERTENSION
     Route: 048
  9. UPTRAVI [Suspect]
     Active Substance: SELEXIPAG
     Route: 048
  10. VITAMIN B12 [VITAMIN B12 NOS] [Suspect]
     Active Substance: CYANOCOBALAMIN
     Indication: PRODUCT USED FOR UNKNOWN INDICATION
     Route: 065
  11. BOSENTAN. [Suspect]
     Active Substance: BOSENTAN
     Indication: PULMONARY ARTERIAL HYPERTENSION
     Route: 048

REACTIONS (93)
  - Cataract [Unknown]
  - Secretion discharge [Unknown]
  - Pyrexia [Unknown]
  - Chest discomfort [Unknown]
  - Upper-airway cough syndrome [Unknown]
  - Pain in jaw [Unknown]
  - Skin disorder [Unknown]
  - Choking [Unknown]
  - Throat irritation [Unknown]
  - Oxygen saturation decreased [Unknown]
  - Gingival bleeding [Unknown]
  - Pain [Unknown]
  - Myalgia [Unknown]
  - Flank pain [Unknown]
  - Cardiac failure congestive [Unknown]
  - Immune thrombocytopenia [Unknown]
  - Sinus disorder [Unknown]
  - Insomnia [Unknown]
  - Respiratory tract infection [Unknown]
  - Discharge [Unknown]
  - Dyspepsia [Unknown]
  - Acrochordon [Unknown]
  - Frequent bowel movements [Unknown]
  - Stomatitis [Not Recovered/Not Resolved]
  - Facial pain [Unknown]
  - Lower respiratory tract infection [Not Recovered/Not Resolved]
  - Cough [Unknown]
  - Platelet disorder [Unknown]
  - Diarrhoea [Unknown]
  - Dyspnoea [Unknown]
  - Odynophagia [Unknown]
  - Vision blurred [Unknown]
  - Bronchitis [Unknown]
  - Nervousness [Unknown]
  - Dental care [Unknown]
  - Abdominal pain upper [Unknown]
  - Muscular weakness [Unknown]
  - Upper respiratory tract infection [Unknown]
  - Aphonia [Unknown]
  - Productive cough [Unknown]
  - Heart rate increased [Not Recovered/Not Resolved]
  - Pulmonary pain [Not Recovered/Not Resolved]
  - Emergency care [Unknown]
  - Exposure to fungus [Unknown]
  - Contusion [Unknown]
  - Fluid retention [Unknown]
  - Chronic obstructive pulmonary disease [Unknown]
  - Chills [Unknown]
  - Rheumatoid arthritis [Unknown]
  - Arthralgia [Unknown]
  - Fatigue [Unknown]
  - Abdominal discomfort [Unknown]
  - Anaemia [Unknown]
  - Illness [Unknown]
  - Unevaluable event [Not Recovered/Not Resolved]
  - Product dose omission issue [Unknown]
  - Eye disorder [Unknown]
  - Eructation [Unknown]
  - Abdominal pain [Unknown]
  - Pulmonary arterial pressure increased [Unknown]
  - Dysphonia [Unknown]
  - Irritable bowel syndrome [Unknown]
  - Respiratory tract haemorrhage [Unknown]
  - Autoimmune disorder [Recovering/Resolving]
  - Rash [Unknown]
  - Feeling abnormal [Unknown]
  - Oropharyngeal pain [Unknown]
  - Pruritus [Unknown]
  - Asthenia [Unknown]
  - Weight decreased [Unknown]
  - Disease progression [Unknown]
  - Rectal haemorrhage [Unknown]
  - Haemoptysis [Unknown]
  - Gastrooesophageal reflux disease [Unknown]
  - Sinus congestion [Unknown]
  - Headache [Unknown]
  - Dizziness [Unknown]
  - Abdominal distension [Not Recovered/Not Resolved]
  - Infection [Unknown]
  - Pain in extremity [Unknown]
  - Wheezing [Unknown]
  - Dry skin [Unknown]
  - Ulcer [Unknown]
  - Drug intolerance [Unknown]
  - Blood pressure decreased [Unknown]
  - Sinusitis [Unknown]
  - Tooth extraction [Unknown]
  - Back pain [Unknown]
  - Neck pain [Unknown]
  - Gastrointestinal disorder [Unknown]
  - Haemodynamic test abnormal [Unknown]
  - Pulmonary arterial hypertension [Unknown]
  - Sputum discoloured [Unknown]

NARRATIVE: CASE EVENT DATE: 20190627
